FAERS Safety Report 19895020 (Version 1)
Quarter: 2021Q3

REPORT INFORMATION
  Report Type: Spontaneous
  Country: FR (occurrence: FR)
  Receive Date: 20210929
  Receipt Date: 20210929
  Transmission Date: 20211014
  Serious: Yes (Hospitalization)
  Sender: FDA-Public Use
  Company Number: FR-MYLANLABS-2021M1065997

PATIENT
  Age: 60 Year
  Sex: Male
  Weight: 103 kg

DRUGS (10)
  1. DAPTOMYCINE [Suspect]
     Active Substance: DAPTOMYCIN
     Indication: SEPSIS
     Dosage: UNK
     Dates: start: 20210320, end: 20210425
  2. FUROSEMIDE. [Concomitant]
     Active Substance: FUROSEMIDE
     Dosage: UNK
  3. INSULINE                           /01223401/ [Concomitant]
     Active Substance: INSULIN NOS
     Dosage: UNK
  4. METHYLPREDNISOLONE. [Concomitant]
     Active Substance: METHYLPREDNISOLONE
     Dosage: UNK
  5. AMBISOME [Suspect]
     Active Substance: AMPHOTERICIN B
     Indication: FUNGAL INFECTION
     Dosage: UNK
     Dates: start: 20210425, end: 20210429
  6. VECTARION [Suspect]
     Active Substance: ALMITRINE
     Indication: MECHANICAL VENTILATION
     Dosage: UNK
     Dates: start: 20210425, end: 20210426
  7. CEFTAZIDIME. [Suspect]
     Active Substance: CEFTAZIDIME
     Indication: SEPSIS
     Dosage: UNK
     Dates: start: 20210413, end: 20210424
  8. MEROPENEM ANHYDROUS [Suspect]
     Active Substance: MEROPENEM ANHYDROUS
     Indication: SEPSIS
     Dosage: UNK
     Dates: start: 20210425, end: 20210502
  9. PANTOPRAZOLE [Concomitant]
     Active Substance: PANTOPRAZOLE
     Dosage: UNK
  10. LINEZOLID MYLAN [Suspect]
     Active Substance: LINEZOLID
     Indication: SEPSIS
     Dosage: UNK
     Dates: start: 20210407, end: 20210424

REACTIONS (1)
  - Lichenoid keratosis [Recovered/Resolved]

NARRATIVE: CASE EVENT DATE: 20210428
